FAERS Safety Report 13384491 (Version 1)
Quarter: 2017Q1

REPORT INFORMATION
  Report Type: Spontaneous
  Country: US (occurrence: US)
  Receive Date: 20170329
  Receipt Date: 20170329
  Transmission Date: 20170429
  Serious: No
  Sender: FDA-Public Use
  Company Number: None

PATIENT
  Age: 61 Year
  Sex: Female
  Weight: 83.46 kg

DRUGS (1)
  1. AZTREONAM. [Suspect]
     Active Substance: AZTREONAM
     Indication: INFECTION
     Route: 042
     Dates: start: 20161205, end: 20161206

REACTIONS (1)
  - Rectal haemorrhage [None]

NARRATIVE: CASE EVENT DATE: 20161209
